FAERS Safety Report 19285631 (Version 1)
Quarter: 2021Q2

REPORT INFORMATION
  Report Type: Spontaneous
  Country: US (occurrence: US)
  Receive Date: 20210521
  Receipt Date: 20210521
  Transmission Date: 20210717
  Serious: Yes (Other)
  Sender: FDA-Public Use
  Company Number: US-IGSA-BIG0014538

PATIENT
  Age: 67 Year
  Sex: Female
  Weight: 107 kg

DRUGS (2)
  1. GAMUNEX?C [Suspect]
     Active Substance: HUMAN IMMUNOGLOBULIN G
     Indication: RHEUMATOID ARTHRITIS
     Dosage: 45 GRAM, TOTAL
     Route: 042
     Dates: start: 20210323, end: 20210323
  2. GAMUNEX?C [Suspect]
     Active Substance: HUMAN IMMUNOGLOBULIN G
     Indication: OFF LABEL USE
     Dosage: 45G QD OVER 2 DAYS Q.4WK.
     Dates: end: 20210323

REACTIONS (4)
  - Pruritus [Unknown]
  - Chest discomfort [Unknown]
  - Oesophageal spasm [Unknown]
  - Urticaria [Unknown]

NARRATIVE: CASE EVENT DATE: 20210323
